FAERS Safety Report 17002438 (Version 1)
Quarter: 2019Q4

REPORT INFORMATION
  Report Type: Spontaneous
  Country: US (occurrence: US)
  Receive Date: 20191107
  Receipt Date: 20191107
  Transmission Date: 20200122
  Serious: No
  Sender: FDA-Public Use
  Company Number: US-009507513-1910USA007945

PATIENT
  Age: 27 Year
  Sex: Female
  Weight: 65.2 kg

DRUGS (1)
  1. NEXPLANON [Suspect]
     Active Substance: ETONOGESTREL
     Indication: CONTRACEPTION
     Dosage: 68 MG/ONCE
     Route: 059
     Dates: start: 20190813, end: 20191008

REACTIONS (4)
  - Incision site complication [Unknown]
  - Implant site pain [Unknown]
  - Complication associated with device [Recovered/Resolved]
  - Implant site bruising [Unknown]

NARRATIVE: CASE EVENT DATE: 2019
